FAERS Safety Report 9526120 (Version 5)
Quarter: 2013Q4

REPORT INFORMATION
  Report Type: Spontaneous
  Country: US (occurrence: US)
  Receive Date: 20130916
  Receipt Date: 20131009
  Transmission Date: 20140711
  Serious: Yes (Hospitalization, Other)
  Sender: FDA-Public Use
  Company Number: US-GILEAD-2013-0083441

PATIENT
  Sex: Female

DRUGS (5)
  1. LETAIRIS [Suspect]
     Indication: PULMONARY HYPERTENSION
     Dosage: 10 MG, QD
     Dates: start: 20090210
  2. REMODULIN [Concomitant]
     Dosage: UNK
     Route: 042
     Dates: end: 20130912
  3. ADCIRCA [Concomitant]
  4. OXYGEN [Concomitant]
  5. VELETRI [Concomitant]

REACTIONS (19)
  - Flushing [Unknown]
  - Fatigue [Unknown]
  - Cor pulmonale [Unknown]
  - Respiratory failure [Unknown]
  - Ear discomfort [Not Recovered/Not Resolved]
  - Pulmonary arterial hypertension [Unknown]
  - Syncope [Recovered/Resolved]
  - Dizziness [Unknown]
  - Dyspnoea [Unknown]
  - Weight increased [Not Recovered/Not Resolved]
  - Pain in jaw [Unknown]
  - Pain in extremity [Not Recovered/Not Resolved]
  - Hypotension [Unknown]
  - Productive cough [Unknown]
  - Diarrhoea [Unknown]
  - Nasal congestion [Unknown]
  - Oedema peripheral [Unknown]
  - Nausea [Unknown]
  - Dyspnoea exertional [Unknown]
